FAERS Safety Report 6693218-9 (Version None)
Quarter: 2010Q2

REPORT INFORMATION
  Report Type: 
  Country: None (occurrence: None)
  Receive Date: 20100421
  Receipt Date: 20100421
  Transmission Date: 20101027
  Serious: No
  Sender: FDA-Public Use
  Company Number: None

PATIENT
  Age: 59 Year
  Sex: Female
  Weight: 97.5234 kg

DRUGS (1)
  1. ACARBOSE [Suspect]
     Indication: DIABETES MELLITUS MANAGEMENT
     Dosage: 1 TABLET 3 TIMES A DAY
     Dates: start: 20100125, end: 20100417

REACTIONS (4)
  - PRURITUS GENERALISED [None]
  - RASH GENERALISED [None]
  - SCAR [None]
  - SKIN HAEMORRHAGE [None]
